FAERS Safety Report 9928395 (Version 1)
Quarter: 2014Q1

REPORT INFORMATION
  Report Type: Report from Study
  Country: US (occurrence: US)
  Receive Date: 20140227
  Receipt Date: 20140227
  Transmission Date: 20141002
  Serious: Yes (Other)
  Sender: FDA-Public Use
  Company Number: US-ROCHE-1343544

PATIENT
  Age: 79 Year
  Sex: Male

DRUGS (5)
  1. LUCENTIS [Suspect]
     Indication: MACULAR DEGENERATION
     Route: 050
  2. AVASTIN [Suspect]
     Indication: MACULAR OEDEMA
     Dosage: 02/JUL/2007, 03/OCT/2007, 29/JUL/2009, 27/OCT/2010, 25/APR/2011,
     Route: 050
     Dates: start: 20070302
  3. TRIESENCE [Concomitant]
     Dosage: OS
     Route: 065
  4. POLYTRIM [Concomitant]
     Dosage: X 3 DAYS
     Route: 065
  5. VIGAMOX [Concomitant]
     Dosage: OS - QD
     Route: 047

REACTIONS (6)
  - Vitrectomy [Unknown]
  - Cataract [Unknown]
  - Visual acuity reduced [Unknown]
  - Eye naevus [Unknown]
  - Off label use [Unknown]
  - Drug ineffective [Unknown]
